FAERS Safety Report 5846054-7 (Version None)
Quarter: 2008Q3

REPORT INFORMATION
  Report Type: 
  Country: None (occurrence: None)
  Receive Date: 20080814
  Receipt Date: 20080805
  Transmission Date: 20090109
  Serious: Yes (Hospitalization, Congenital Anomaly)
  Sender: FDA-Public Use
  Company Number: US-PFIZER INC-2008049895

PATIENT
  Sex: Female

DRUGS (4)
  1. ZOLOFT [Suspect]
     Indication: ANXIETY
     Dosage: DAILY DOSE:150MG
     Route: 064
  2. ZOLOFT [Suspect]
     Indication: DEPRESSION
  3. VITAMIN TAB [Concomitant]
  4. TYLENOL [Concomitant]
     Dosage: FREQ:AS NEEDED

REACTIONS (19)
  - ANAL ATRESIA [None]
  - CONSTIPATION [None]
  - CRYING [None]
  - DERMATITIS DIAPER [None]
  - DRUG EXPOSURE DURING PREGNANCY [None]
  - FAECAL INCONTINENCE [None]
  - FLATULENCE [None]
  - HYPOTONIA [None]
  - JAUNDICE NEONATAL [None]
  - MATERNAL DRUGS AFFECTING FOETUS [None]
  - PNEUMONIA [None]
  - PREMATURE BABY [None]
  - PYREXIA [None]
  - SEPSIS NEONATAL [None]
  - SMALL FOR DATES BABY [None]
  - UNDERWEIGHT [None]
  - UPPER RESPIRATORY TRACT INFECTION [None]
  - VAGINAL FISTULA [None]
  - VOMITING [None]
